APPROVED DRUG PRODUCT: CHLORPHENIRAMINE MALEATE
Active Ingredient: CHLORPHENIRAMINE MALEATE
Strength: 4MG
Dosage Form/Route: TABLET;ORAL
Application: A088556 | Product #001
Applicant: PIONEER PHARMACEUTICALS INC
Approved: Jul 13, 1984 | RLD: No | RS: No | Type: DISCN